FAERS Safety Report 4621904-0 (Version None)
Quarter: 2005Q1

REPORT INFORMATION
  Report Type: 
  Country: None (occurrence: None)
  Receive Date: 20050329
  Receipt Date: 20040224
  Transmission Date: 20050727
  Serious: Yes (Hospitalization)
  Sender: FDA-Public Use
  Company Number: FR-GLAXOSMITHKLINE-B0324456A

PATIENT
  Age: 51 Year
  Sex: Male
  Weight: 82.6 kg

DRUGS (2)
  1. MALARONE [Suspect]
     Indication: MALARIA PROPHYLAXIS
     Route: 048
     Dates: start: 20031122
  2. INSECT REPELLENT [Concomitant]

REACTIONS (9)
  - ALANINE AMINOTRANSFERASE INCREASED [None]
  - ASPARTATE AMINOTRANSFERASE INCREASED [None]
  - ATRIAL FIBRILLATION [None]
  - FIBRIN D DIMER INCREASED [None]
  - MALARIA [None]
  - NO REACTION ON PREVIOUS EXPOSURE TO DRUG [None]
  - PAIN [None]
  - THROMBOCYTOPENIA [None]
  - TRANSAMINASES INCREASED [None]
